FAERS Safety Report 23334082 (Version 1)
Quarter: 2023Q4

REPORT INFORMATION
  Report Type: Spontaneous
  Country: FR (occurrence: FR)
  Receive Date: 20231223
  Receipt Date: 20231223
  Transmission Date: 20240110
  Serious: Yes (Hospitalization, Other)
  Sender: FDA-Public Use
  Company Number: FR-JNJFOC-20231157788

PATIENT
  Age: 26 Year
  Sex: Female
  Weight: 53 kg

DRUGS (2)
  1. CONCERTA [Interacting]
     Active Substance: METHYLPHENIDATE HYDROCHLORIDE
     Indication: Attention deficit hyperactivity disorder
     Route: 048
  2. OMEPRAZOLE [Interacting]
     Active Substance: OMEPRAZOLE
     Indication: Gastritis
     Route: 048

REACTIONS (14)
  - Suicidal ideation [Unknown]
  - Delirium [Unknown]
  - Tachycardia [Recovered/Resolved with Sequelae]
  - Decreased appetite [Recovered/Resolved with Sequelae]
  - Confusional state [Recovered/Resolved with Sequelae]
  - Weight decreased [Recovered/Resolved with Sequelae]
  - Hypertension [Unknown]
  - Pyrexia [Unknown]
  - Anxiety [Unknown]
  - Attention deficit hyperactivity disorder [Unknown]
  - Drug interaction [Unknown]
  - Hyperthermia [Unknown]
  - Hyperferritinaemia [Unknown]
  - Stress [Unknown]

NARRATIVE: CASE EVENT DATE: 20230706
